FAERS Safety Report 19406272 (Version 1)
Quarter: 2021Q2

REPORT INFORMATION
  Report Type: Spontaneous
  Country: DE (occurrence: DE)
  Receive Date: 20210611
  Receipt Date: 20210611
  Transmission Date: 20210717
  Serious: Yes (Hospitalization)
  Sender: FDA-Public Use
  Company Number: DE-TEVA-2021-DE-1920361

PATIENT
  Age: 76 Year
  Sex: Female
  Weight: 99.1 kg

DRUGS (10)
  1. CLOPIDOGREL [Suspect]
     Active Substance: CLOPIDOGREL BISULFATE
     Dosage: 75 MILLIGRAM DAILY;  1?0?0?0
     Route: 048
  2. VERAPAMIL [Concomitant]
     Active Substance: VERAPAMIL HYDROCHLORIDE
     Dosage: 80 MILLIGRAM DAILY;   1?0?1?0
     Route: 048
  3. ROFLUMILAST. [Concomitant]
     Active Substance: ROFLUMILAST
     Dosage: 250 MICROGRAM DAILY;   1?0?0?0,
     Route: 048
  4. METHYLPREDNISOLON [Concomitant]
     Active Substance: METHYLPREDNISOLONE
     Dosage: 16 MILLIGRAM DAILY;  1?0?0?0,
     Route: 048
  5. TORASEMID [Concomitant]
     Active Substance: TORSEMIDE
     Dosage: 10 MILLIGRAM DAILY;  1?0?0?0
     Route: 048
  6. APIXABAN [Suspect]
     Active Substance: APIXABAN
     Dosage: 10 MILLIGRAM DAILY; 1?0?1?0
     Route: 048
  7. PANTOPRAZOL [Concomitant]
     Active Substance: PANTOPRAZOLE SODIUM
     Dosage: 2 DOSAGE FORMS DAILY; 20 MG, 2?0?0?0,
     Route: 048
  8. METHYLPREDNISOLON [Concomitant]
     Active Substance: METHYLPREDNISOLONE
     Dosage: .5 DOSAGE FORMS DAILY; 16 MG, 0.5?0?0?0,
     Route: 048
  9. GLYCOPYRRONIUMBROMID/INDACATEROL [Concomitant]
     Dosage: 1 DOSAGE FORMS DAILY; ?1?0?0?0, METERED DOSE INHALER
     Route: 055
  10. METHYLPREDNISOLONE. [Concomitant]
     Active Substance: METHYLPREDNISOLONE
     Dosage: 16 MG, 1?0?0.5?0
     Route: 048

REACTIONS (1)
  - Haematochezia [Unknown]

NARRATIVE: CASE EVENT DATE: 20210228
